FAERS Safety Report 6577760-7 (Version None)
Quarter: 2010Q1

REPORT INFORMATION
  Report Type: 
  Country: None (occurrence: None)
  Receive Date: 20100211
  Receipt Date: 20100203
  Transmission Date: 20100710
  Serious: Yes (Life-Threatening)
  Sender: FDA-Public Use
  Company Number: US-ROCHE-606953

PATIENT
  Sex: Male
  Weight: 96 kg

DRUGS (12)
  1. TOCILIZUMAB [Suspect]
     Indication: RHEUMATOID ARTHRITIS
     Route: 042
     Dates: start: 20060207
  2. TOCILIZUMAB [Suspect]
     Route: 042
     Dates: start: 20080916
  3. TOCILIZUMAB [Suspect]
     Route: 042
     Dates: start: 20081014
  4. TOCILIZUMAB [Suspect]
     Route: 042
     Dates: start: 20081111
  5. TOCILIZUMAB [Suspect]
     Dosage: WITHDRAWN FROM STUDY.
     Route: 042
     Dates: start: 20081211
  6. TOCILIZUMAB [Suspect]
     Dosage: PREVIOUSLY ENROLLED IN STUDY WA18063
     Route: 042
  7. HYDROXYCHLOROQUINE SULFATE [Concomitant]
     Indication: RHEUMATOID ARTHRITIS
     Dosage: START DATE REPORTED 7- 04.
     Route: 048
  8. METHOTREXATE [Concomitant]
     Indication: RHEUMATOID ARTHRITIS
     Route: 048
     Dates: start: 20060725
  9. LISINOPRIL [Concomitant]
     Indication: HYPERTENSION
     Dates: start: 20070908, end: 20080815
  10. LOTREL [Concomitant]
     Indication: HYPERTENSION
     Dates: start: 20080816
  11. FOLIC ACID [Concomitant]
     Indication: RHEUMATOID ARTHRITIS
     Dates: start: 20070602
  12. MULTI-VITAMIN [Concomitant]
     Route: 048
     Dates: start: 20060820, end: 20080401

REACTIONS (1)
  - PROSTATE CANCER [None]
